FAERS Safety Report 5465217-6 (Version None)
Quarter: 2007Q3

REPORT INFORMATION
  Report Type: 
  Country: None (occurrence: None)
  Receive Date: 20070924
  Receipt Date: 20070913
  Transmission Date: 20080115
  Serious: Yes (Other)
  Sender: FDA-Public Use
  Company Number: PHBS2007BR14720

PATIENT
  Sex: Female

DRUGS (5)
  1. TRILEPTAL [Suspect]
     Indication: CONVULSION
     Dosage: 3 TABLETS DAILY
  2. TRILEPTAL [Suspect]
     Dosage: 600 MG/DAY
     Route: 048
  3. CARBAMAZEPINE [Concomitant]
  4. DEPAKOTE [Concomitant]
  5. LEXOTAN [Concomitant]

REACTIONS (1)
  - CONVULSION [None]
